FAERS Safety Report 4739169-8 (Version None)
Quarter: 2005Q3

REPORT INFORMATION
  Report Type: 
  Country: None (occurrence: None)
  Receive Date: 20050810
  Receipt Date: 20050502
  Transmission Date: 20060218
  Serious: No
  Sender: FDA-Public Use
  Company Number: US-GLAXOSMITHKLINE-A0556926A

PATIENT
  Age: 32 Year
  Sex: Female

DRUGS (5)
  1. PAXIL CR [Suspect]
     Indication: DEPRESSION
     Dosage: 12.5MG PER DAY
     Route: 048
  2. TRIFLUOPERAZINE HYDROCHLORIDE [Suspect]
     Dosage: 2MG PER DAY
  3. STELAZINE [Concomitant]
  4. NEXIUM [Concomitant]
  5. RISPERDAL [Concomitant]

REACTIONS (2)
  - CHEST PAIN [None]
  - FATIGUE [None]
